FAERS Safety Report 6609522-6 (Version None)
Quarter: 2010Q1

REPORT INFORMATION
  Report Type: 
  Country: None (occurrence: None)
  Receive Date: 20100302
  Receipt Date: 20100223
  Transmission Date: 20100710
  Serious: Yes (Disabling, Other)
  Sender: FDA-Public Use
  Company Number: GB-ASTRAZENECA-2010SE07962

PATIENT
  Age: 62 Year
  Sex: Female

DRUGS (7)
  1. ROSUVASTATIN [Suspect]
     Indication: HYPERCHOLESTEROLAEMIA
     Route: 048
     Dates: start: 20090920, end: 20091005
  2. AMISULPRIDE [Concomitant]
     Indication: ANXIETY
     Route: 048
     Dates: start: 20041209
  3. AMISULPRIDE [Concomitant]
     Indication: DEPRESSION
     Route: 048
     Dates: start: 20041209
  4. BUSPIRONE [Concomitant]
     Indication: DEPRESSION
     Route: 048
     Dates: start: 20000613
  5. EZETIMIBE [Concomitant]
     Indication: HYPERCHOLESTEROLAEMIA
     Route: 048
     Dates: start: 20080609
  6. VENLAFAXINE [Concomitant]
     Indication: ANXIETY
     Route: 048
     Dates: start: 20030120
  7. VENLAFAXINE [Concomitant]
     Indication: DEPRESSION
     Route: 048
     Dates: start: 20030120

REACTIONS (1)
  - INTENTION TREMOR [None]
